FAERS Safety Report 13507589 (Version 1)
Quarter: 2017Q2

REPORT INFORMATION
  Report Type: Spontaneous
  Country: GB (occurrence: GB)
  Receive Date: 20170503
  Receipt Date: 20170503
  Transmission Date: 20170830
  Serious: Yes (Other)
  Sender: FDA-Public Use
  Company Number: PHFR2017GB002927

PATIENT
  Age: 70 Year
  Sex: Female
  Weight: 64 kg

DRUGS (1)
  1. LATANOPROST. [Suspect]
     Active Substance: LATANOPROST
     Indication: GLAUCOMA
     Dosage: AT NIGHT. 50MCG/ML
     Route: 065
     Dates: start: 20160222

REACTIONS (2)
  - Atrioventricular block second degree [Not Recovered/Not Resolved]
  - Bradycardia [Unknown]

NARRATIVE: CASE EVENT DATE: 20160222
